FAERS Safety Report 6885982-0 (Version None)
Quarter: 2010Q3

REPORT INFORMATION
  Report Type: 
  Country: None (occurrence: None)
  Receive Date: 20100729
  Receipt Date: 20080123
  Transmission Date: 20110219
  Serious: Yes (Hospitalization, Other)
  Sender: FDA-Public Use
  Company Number: US-PFIZER INC-2008006518

PATIENT
  Sex: Female
  Weight: 72.6 kg

DRUGS (2)
  1. CELEBREX [Suspect]
     Indication: OSTEOARTHRITIS
     Dates: start: 19990824
  2. CELEBREX [Suspect]

REACTIONS (1)
  - MYOCARDIAL INFARCTION [None]
